FAERS Safety Report 5945187-4 (Version None)
Quarter: 2008Q4

REPORT INFORMATION
  Report Type: 
  Country: None (occurrence: None)
  Receive Date: 20081107
  Receipt Date: 20081031
  Transmission Date: 20090506
  Serious: Yes (Other)
  Sender: FDA-Public Use
  Company Number: B0545003A

PATIENT
  Age: 43 Year
  Sex: Male

DRUGS (6)
  1. TRIZIVIR [Suspect]
     Indication: HIV INFECTION
     Route: 065
     Dates: start: 20040421, end: 20040819
  2. KALETRA [Suspect]
     Indication: HIV INFECTION
     Route: 065
     Dates: start: 20040421, end: 20040819
  3. VIREAD [Suspect]
     Indication: HIV INFECTION
     Route: 065
     Dates: start: 20040421, end: 20040819
  4. TELZIR [Concomitant]
     Route: 065
     Dates: start: 20050302
  5. NORVIR [Concomitant]
     Route: 065
     Dates: start: 20050302
  6. BACTRIM [Concomitant]
     Route: 048

REACTIONS (3)
  - DRUG INTOLERANCE [None]
  - MITOCHONDRIAL CYTOPATHY [None]
  - MYOSITIS [None]
